FAERS Safety Report 7582463-6 (Version None)
Quarter: 2011Q2

REPORT INFORMATION
  Report Type: 
  Country: None (occurrence: None)
  Receive Date: 20110623
  Receipt Date: 20110611
  Transmission Date: 20111010
  Serious: Yes (Hospitalization, Other)
  Sender: FDA-Public Use
  Company Number: 1000021411

PATIENT
  Age: 34 Year
  Sex: Female
  Weight: 80 kg

DRUGS (3)
  1. ALCOHOL (ETHANOL) [Suspect]
     Dosage: OVERDOSE: UNKNOWN SINGLE AMOUNT (1 PER MILLE), ORAL
     Route: 048
     Dates: start: 20110523, end: 20110523
  2. TRIMIPRAMINE MALEATE [Suspect]
     Dosage: 1800 MG, ONCE, ORAL
     Route: 048
     Dates: start: 20110523, end: 20110523
  3. CITALOPRAM HYDROBROMIDE [Suspect]
     Dosage: 360 MG, ONCE, ORAL
     Route: 048
     Dates: start: 20110523, end: 20110523

REACTIONS (4)
  - SOMNOLENCE [None]
  - SUICIDE ATTEMPT [None]
  - MULTIPLE DRUG OVERDOSE INTENTIONAL [None]
  - ALCOHOL POISONING [None]
